FAERS Safety Report 8955578 (Version 1)
Quarter: 2012Q4

REPORT INFORMATION
  Report Type: 
  Country: US (occurrence: US)
  Receive Date: 20121210
  Receipt Date: 20121210
  Transmission Date: 20130627
  Serious: Yes (Other)
  Sender: FDA-Public Use
  Company Number: US-009507513-1212USA001888

PATIENT
  Age: 40 Year
  Sex: Female

DRUGS (9)
  1. ROCURONIUM BROMIDE [Suspect]
     Indication: MAINTENANCE OF ANAESTHESIA
     Dosage: 80 mg, UNK
  2. GLOBULIN, IMMUNE [Suspect]
     Indication: NEUROMYELITIS OPTICA
  3. OXYCODONE [Concomitant]
     Route: 048
  4. LAMOTRIGINE [Concomitant]
     Indication: NEURALGIA
  5. VALACYCLOVIR HYDROCHLORIDE [Concomitant]
  6. VITAMINS (UNSPECIFIED) [Concomitant]
  7. PROPOFOL [Concomitant]
     Dosage: 150 mg, UNK
  8. FENTANYL [Concomitant]
     Dosage: 100 Microgram, UNK
  9. SODIUM CITRATE [Suspect]
     Dosage: 30 UNK, UNK

REACTIONS (2)
  - Complication of delivery [Recovered/Resolved]
  - Exposure during pregnancy [Recovered/Resolved]
